FAERS Safety Report 11853583 (Version 1)
Quarter: 2015Q4

REPORT INFORMATION
  Report Type: Spontaneous
  Country: US (occurrence: US)
  Receive Date: 20151219
  Receipt Date: 20151219
  Transmission Date: 20160305
  Serious: No
  Sender: FDA-Public Use
  Company Number: US-BRISTOL-MYERS SQUIBB COMPANY-2001SUS0310

PATIENT
  Age: 24 Year
  Sex: Female

DRUGS (7)
  1. SUSTIVA [Suspect]
     Active Substance: EFAVIRENZ
     Indication: HIV INFECTION
     Dosage: 1 DF, UNK
     Route: 048
     Dates: start: 20000309, end: 20000601
  2. NELFINAVIR [Suspect]
     Active Substance: NELFINAVIR
     Dosage: 1 DF, UNK
     Route: 048
     Dates: start: 19990423
  3. SAQUINAVIR [Suspect]
     Active Substance: SAQUINAVIR
     Indication: HIV INFECTION
     Dosage: 2400 MG, UNK
     Route: 048
     Dates: start: 20000309, end: 20001101
  4. STAVUDINE. [Suspect]
     Active Substance: STAVUDINE
     Indication: HIV INFECTION
     Dosage: 60 MG, QD
     Route: 048
     Dates: start: 19990423, end: 20000301
  5. LAMIVUDINE AND ZIDOVUDINE [Suspect]
     Active Substance: LAMIVUDINE\ZIDOVUDINE
     Indication: HIV INFECTION
     Dosage: 1 DF, UNK
     Route: 048
     Dates: start: 20000309
  6. NELFINAVIR [Suspect]
     Active Substance: NELFINAVIR
     Indication: HIV INFECTION
     Dosage: 2500 MG, UNK
     Route: 048
     Dates: start: 19990423
  7. ABACAVIR SULFATE. [Suspect]
     Active Substance: ABACAVIR SULFATE
     Indication: HIV INFECTION
     Dosage: 600 MG, UNK
     Route: 048
     Dates: start: 19990423, end: 20000301

REACTIONS (3)
  - Pregnancy [Recovered/Resolved]
  - Normal newborn [Unknown]
  - No adverse event [Unknown]

NARRATIVE: CASE EVENT DATE: 20000201
